FAERS Safety Report 9806964 (Version 1)
Quarter: 2014Q1

REPORT INFORMATION
  Report Type: Spontaneous
  Country: US (occurrence: US)
  Receive Date: 20140109
  Receipt Date: 20140109
  Transmission Date: 20141002
  Serious: Yes (Other)
  Sender: FDA-Public Use
  Company Number: US-PFIZER INC-2014004176

PATIENT
  Age: 59 Year
  Sex: Female
  Weight: 50.7 kg

DRUGS (4)
  1. EFFEXOR XR [Suspect]
     Indication: MAJOR DEPRESSION
     Dosage: 300 MG, 1X/DAY (150 MG X 2 CAPSULES)
     Route: 048
     Dates: start: 201312
  2. EFFEXOR XR [Suspect]
     Indication: PSYCHOTIC DISORDER
  3. TIMOLOL [Concomitant]
     Indication: GLAUCOMA
     Dosage: UNK
     Route: 047
  4. KLONOPIN [Concomitant]
     Indication: GENERALISED ANXIETY DISORDER
     Dosage: UNK

REACTIONS (2)
  - Bipolar disorder [Unknown]
  - Aggression [Unknown]
